FAERS Safety Report 24246674 (Version 1)
Quarter: 2024Q3

REPORT INFORMATION
  Report Type: Report from Study
  Country: US (occurrence: US)
  Receive Date: 20240825
  Receipt Date: 20240825
  Transmission Date: 20241017
  Serious: Yes (Other)
  Sender: JOHNSON AND JOHNSON
  Company Number: US-JNJFOC-20240849828

PATIENT

DRUGS (1)
  1. REMICADE [Suspect]
     Active Substance: INFLIXIMAB
     Indication: Scleritis
     Dosage: INFLIXIMAB 48 MG/KG INTRAVENOUS EVERY 48 WEEKS AFTER LOADING INFUSIONS
     Route: 041

REACTIONS (4)
  - Nephrolithiasis [Unknown]
  - Ejection fraction [Unknown]
  - Drug ineffective [Unknown]
  - Off label use [Unknown]
